FAERS Safety Report 9833483 (Version 2)
Quarter: 2015Q4

REPORT INFORMATION
  Report Type: Report from Study
  Country: US (occurrence: US)
  Receive Date: 20140122
  Receipt Date: 20151002
  Transmission Date: 20160305
  Serious: Yes (Other)
  Sender: FDA-Public Use
  Company Number: US-ROCHE-1332446

PATIENT
  Age: 52 Year
  Sex: Male

DRUGS (21)
  1. ZOLPIDEM TARTRATE. [Concomitant]
     Active Substance: ZOLPIDEM TARTRATE
     Route: 065
  2. XIFAXAN [Concomitant]
     Active Substance: RIFAXIMIN
     Route: 048
  3. PEGASYS [Suspect]
     Active Substance: PEGINTERFERON ALFA-2A
     Indication: HEPATITIS C
     Dosage: 180MCG/0.5ML
     Route: 058
  4. VITAMINE B12 ROCHE [Concomitant]
     Route: 065
     Dates: start: 20131003
  5. PROCRIT [Concomitant]
     Active Substance: ERYTHROPOIETIN
     Route: 058
  6. SPIRONOLACTONE. [Concomitant]
     Active Substance: SPIRONOLACTONE
     Route: 048
     Dates: start: 20131223
  7. CALCITRIOL. [Concomitant]
     Active Substance: CALCITRIOL
     Route: 065
  8. FOLIC ACID. [Concomitant]
     Active Substance: FOLIC ACID
     Route: 048
  9. PEGASYS [Suspect]
     Active Substance: PEGINTERFERON ALFA-2A
     Route: 058
  10. RIBASPHERE [Suspect]
     Active Substance: RIBAVIRIN
     Indication: HEPATITIS C
     Dosage: 2 TABS IN AM AND 2 TABS IN PM
     Route: 048
  11. VIAGRA [Concomitant]
     Active Substance: SILDENAFIL CITRATE
     Route: 048
  12. FERROUS SULFATE [Concomitant]
     Active Substance: FERROUS SULFATE\FERROUS SULFATE, DRIED
     Route: 048
  13. FUROSEMIDE. [Concomitant]
     Active Substance: FUROSEMIDE
     Route: 065
  14. TRAZODONE HYDROCHLORIDE. [Concomitant]
     Active Substance: TRAZODONE HYDROCHLORIDE
     Route: 048
  15. VITAMIN A [Concomitant]
     Active Substance: VITAMIN A
     Route: 048
  16. ZINC SULFATE [Concomitant]
     Active Substance: ZINC SULFATE\ZINC SULFATE ANHYDROUS
     Route: 048
  17. LACTOSE [Concomitant]
     Active Substance: LACTOSE
  18. OMEPRAZOLE. [Concomitant]
     Active Substance: OMEPRAZOLE
     Route: 065
  19. XIFAXAN [Concomitant]
     Active Substance: RIFAXIMIN
     Route: 048
  20. FERROUS SULFATE [Concomitant]
     Active Substance: FERROUS SULFATE\FERROUS SULFATE, DRIED
     Route: 048
     Dates: start: 20131003
  21. VITAMIN E [Concomitant]
     Active Substance: .ALPHA.-TOCOPHEROL
     Dosage: 400 UNIT CAPS
     Route: 065
     Dates: start: 20121003

REACTIONS (27)
  - Thrombocytopenia [Unknown]
  - Hepatic cirrhosis [Unknown]
  - Weight decreased [Unknown]
  - Duodenitis [Unknown]
  - Liver function test abnormal [Unknown]
  - Proteinuria [Unknown]
  - Anaemia [Unknown]
  - Portal vein thrombosis [Unknown]
  - Alpha 1 foetoprotein abnormal [Unknown]
  - Insomnia [Unknown]
  - Ascites [Unknown]
  - Hepatic encephalopathy [Unknown]
  - Diarrhoea [Unknown]
  - Blood thyroid stimulating hormone increased [Unknown]
  - Hepatic failure [Unknown]
  - Hypothyroidism [Unknown]
  - Fatigue [Unknown]
  - Sleep disorder [Unknown]
  - Oedema [Unknown]
  - Chronic kidney disease [Unknown]
  - Neutropenia [Unknown]
  - Oesophagitis [Unknown]
  - Haematochezia [Unknown]
  - Diverticulum [Unknown]
  - Gastritis [Unknown]
  - Jaundice [Unknown]
  - Weight increased [Unknown]

NARRATIVE: CASE EVENT DATE: 20080807
